FAERS Safety Report 5417714-7 (Version None)
Quarter: 2007Q3

REPORT INFORMATION
  Report Type: 
  Country: None (occurrence: None)
  Receive Date: 20070815
  Receipt Date: 20070815
  Transmission Date: 20080115
  Serious: No
  Sender: FDA-Public Use
  Company Number: None

PATIENT
  Sex: Female
  Weight: 36.061 kg

DRUGS (1)
  1. GENERIC OXYCONTIN 40MG - PEVA [Suspect]
     Indication: BACK PAIN
     Dosage: 40MG ONCE BID ORAL
     Route: 048
     Dates: start: 20070201, end: 20070601

REACTIONS (5)
  - ASTHENIA [None]
  - BREAKTHROUGH PAIN [None]
  - DIZZINESS [None]
  - PHARMACEUTICAL PRODUCT COMPLAINT [None]
  - THERAPEUTIC RESPONSE UNEXPECTED WITH DRUG SUBSTITUTION [None]
